FAERS Safety Report 10742787 (Version 2)
Quarter: 2015Q1

REPORT INFORMATION
  Report Type: Report from Study
  Country: JP (occurrence: JP)
  Receive Date: 20150127
  Receipt Date: 20150306
  Transmission Date: 20150721
  Serious: Yes (Death, Life-Threatening, Other)
  Sender: FDA-Public Use
  Company Number: JP-SA-THYM-1001842

PATIENT
  Age: 27 Month
  Sex: Male
  Weight: 10 kg

DRUGS (34)
  1. METHYLPREDNISOLONE SODIUM SUCCINATE. [Concomitant]
     Active Substance: METHYLPREDNISOLONE SODIUM SUCCINATE
     Indication: PREMEDICATION
     Dosage: UNK
     Dates: start: 20100311, end: 20100315
  2. FILGRASTIM [Concomitant]
     Active Substance: FILGRASTIM
     Indication: PROPHYLAXIS
     Dosage: UNK
     Dates: start: 20100324, end: 20100331
  3. ACICLOVIR [Concomitant]
     Active Substance: ACYCLOVIR
     Indication: ANTIVIRAL PROPHYLAXIS
     Dosage: UNK
     Dates: start: 20100310, end: 20100425
  4. ACICLOVIR [Concomitant]
     Active Substance: ACYCLOVIR
     Indication: ANTIVIRAL PROPHYLAXIS
     Dosage: UNK
     Dates: start: 20100426, end: 20100516
  5. GRANISETRON HYDROCHLORIDE. [Concomitant]
     Active Substance: GRANISETRON HYDROCHLORIDE
     Indication: PROPHYLAXIS OF NAUSEA AND VOMITING
     Dosage: UNK
     Dates: start: 20100310, end: 20100315
  6. CICLOSPORIN [Concomitant]
     Active Substance: CYCLOSPORINE
     Indication: PROPHYLAXIS AGAINST GRAFT VERSUS HOST DISEASE
     Dosage: UNK
     Dates: start: 20100426, end: 20100516
  7. PROGRAF [Suspect]
     Active Substance: TACROLIMUS\TACROLIMUS ANHYDROUS
     Indication: PROPHYLAXIS AGAINST GRAFT VERSUS HOST DISEASE
     Route: 065
     Dates: start: 20100316, end: 20100323
  8. NORFLOXACIN [Concomitant]
     Active Substance: NORFLOXACIN
     Indication: STERILISATION
     Dosage: UNK
     Dates: start: 20100307, end: 20100430
  9. MICAFUNGIN SODIUM [Concomitant]
     Active Substance: MICAFUNGIN SODIUM
     Indication: ANTIFUNGAL PROPHYLAXIS
     Dosage: UNK
     Dates: start: 20100305, end: 20100426
  10. DALTEPARIN SODIUM [Concomitant]
     Active Substance: DALTEPARIN SODIUM
     Indication: PROPHYLAXIS
     Dosage: UNK
     Dates: start: 20100309, end: 20100419
  11. HYDROXYZINE [Concomitant]
     Active Substance: HYDROXYZINE\HYDROXYZINE HYDROCHLORIDE
     Indication: ALLERGY PROPHYLAXIS
     Dosage: UNK
     Dates: start: 20100317, end: 20100317
  12. THYMOGLOBULINE [Suspect]
     Active Substance: LAPINE T-LYMPHOCYTE IMMUNE GLOBULIN
     Indication: BONE MARROW CONDITIONING REGIMEN
     Dosage: 25 MG, QD
     Route: 042
     Dates: start: 20100311, end: 20100315
  13. CLARITHROMYCIN. [Concomitant]
     Active Substance: CLARITHROMYCIN
     Indication: ATYPICAL MYCOBACTERIAL INFECTION
     Dosage: UNK
     Dates: start: 20091022, end: 20100516
  14. RIFABUTIN. [Concomitant]
     Active Substance: RIFABUTIN
     Indication: ATYPICAL MYCOBACTERIAL INFECTION
     Dosage: UNK
     Dates: start: 20091022, end: 20100516
  15. IMMUNOGLOBULIN [Concomitant]
     Active Substance: HUMAN IMMUNOGLOBULIN G
     Indication: INFECTION PROPHYLAXIS
     Dosage: UNK
     Dates: start: 20080414, end: 20100516
  16. MELPHALAN [Concomitant]
     Active Substance: MELPHALAN
     Indication: BONE MARROW CONDITIONING REGIMEN
     Dosage: UNK
     Dates: start: 20100311, end: 20100312
  17. EBUTOL [Concomitant]
     Active Substance: ETHAMBUTOL HYDROCHLORIDE
     Indication: ATYPICAL MYCOBACTERIAL INFECTION
  18. TRIMETHOPRIM/SULFAMETHOXAZOLE [Concomitant]
     Indication: ANTIFUNGAL PROPHYLAXIS
     Dosage: UNK
     Dates: start: 20080225, end: 20100516
  19. ANTITHROMBIN III [Concomitant]
     Active Substance: ANTITHROMBIN III HUMAN
     Indication: THROMBOSIS PROPHYLAXIS
     Dosage: UNK
     Dates: start: 20100324, end: 20100324
  20. TACROLIMUS. [Concomitant]
     Active Substance: TACROLIMUS
     Indication: PROPHYLAXIS AGAINST GRAFT VERSUS HOST DISEASE
     Dosage: UNK
     Dates: start: 20100316, end: 20100323
  21. KLARICID [Concomitant]
     Active Substance: CLARITHROMYCIN
     Indication: ATYPICAL MYCOBACTERIAL INFECTION
  22. MYCOBUTIN [Concomitant]
     Active Substance: RIFABUTIN
     Indication: ATYPICAL MYCOBACTERIAL INFECTION
  23. CICLOSPORIN [Concomitant]
     Active Substance: CYCLOSPORINE
     Indication: PROPHYLAXIS AGAINST GRAFT VERSUS HOST DISEASE
     Dosage: UNK
     Dates: start: 20100326, end: 20100426
  24. FLUDARA [Suspect]
     Active Substance: FLUDARABINE PHOSPHATE
     Indication: BONE MARROW CONDITIONING REGIMEN
     Dosage: UNK
     Route: 042
     Dates: start: 20100310, end: 20100314
  25. ALKERAN [Suspect]
     Active Substance: MELPHALAN
     Indication: BONE MARROW CONDITIONING REGIMEN
     Route: 065
     Dates: start: 20100311, end: 20100312
  26. ETHAMBUTOL DIHYDROCHLORIDE [Concomitant]
     Indication: ATYPICAL MYCOBACTERIAL INFECTION
     Dosage: UNK
     Dates: start: 20091022, end: 20100516
  27. ALLOPURINOL. [Concomitant]
     Active Substance: ALLOPURINOL
     Indication: PROPHYLAXIS
     Dosage: UNK
     Dates: start: 20100309, end: 20100407
  28. SCOPOLAMINE BUTYLBROMIDE [Concomitant]
     Active Substance: SCOPOLAMINE
     Indication: PROPHYLAXIS
     Dosage: UNK
     Dates: start: 20100311, end: 20100312
  29. FLUCONAZOLE. [Concomitant]
     Active Substance: FLUCONAZOLE
     Indication: ANTIFUNGAL PROPHYLAXIS
     Dosage: UNK
     Dates: start: 20090713, end: 20100304
  30. HYDROCORTISONE SODIUM SUCCINATE [Concomitant]
     Active Substance: HYDROCORTISONE SODIUM SUCCINATE
     Indication: ALLERGY PROPHYLAXIS
     Dosage: UNK
     Dates: start: 20100317, end: 20100317
  31. ANTIBIOTICS-RESISTANT LACTIC ACID BACTERIAE [Concomitant]
     Active Substance: UNSPECIFIED INGREDIENT
     Indication: STERILISATION
     Dosage: UNK
     Dates: start: 20091022, end: 20100516
  32. POVIDONE-IODINE. [Concomitant]
     Active Substance: POVIDONE-IODINE
     Indication: ANTI-INFECTIVE THERAPY
     Dosage: UNK
     Dates: start: 20100222, end: 20100516
  33. URSODEOXYCHOLIC ACID [Concomitant]
     Active Substance: URSODIOL
     Indication: PROPHYLAXIS
     Dosage: UNK
     Dates: start: 20100307, end: 20100430
  34. SODIUM GUALENATE [Concomitant]
     Active Substance: SODIUM GUALENATE
     Indication: PROPHYLAXIS
     Dosage: UNK
     Dates: start: 20100309, end: 20100407

REACTIONS (7)
  - Engraft failure [Fatal]
  - Alanine aminotransferase increased [Recovering/Resolving]
  - Bacterial infection [Fatal]
  - Amylase increased [Recovered/Resolved]
  - Streptococcal infection [Recovered/Resolved]
  - Aspartate aminotransferase increased [Recovering/Resolving]
  - Seizure [Recovering/Resolving]

NARRATIVE: CASE EVENT DATE: 20100312
